FAERS Safety Report 25216863 (Version 1)
Quarter: 2025Q2

REPORT INFORMATION
  Report Type: Spontaneous
  Country: CN (occurrence: CN)
  Receive Date: 20250419
  Receipt Date: 20250419
  Transmission Date: 20250717
  Serious: Yes (Death, Hospitalization, Other)
  Sender: Agnitio
  Company Number: CN-Agnitio-000001

PATIENT
  Age: 63 Year
  Sex: Male

DRUGS (7)
  1. TIGECYCLINE [Suspect]
     Active Substance: TIGECYCLINE
     Indication: Veillonella infection
     Route: 042
  2. FLUCONAZOLE [Suspect]
     Active Substance: FLUCONAZOLE
     Indication: Candida infection
     Route: 041
  3. PIPERACILLIN AND TAZOBACTAM [Concomitant]
     Active Substance: PIPERACILLIN SODIUM\TAZOBACTAM SODIUM
     Indication: Pneumonia
     Route: 042
  4. CLOPIDOGREL [Concomitant]
     Active Substance: CLOPIDOGREL BISULFATE
     Indication: Antiplatelet therapy
     Route: 065
  5. MEROPENEM [Concomitant]
     Active Substance: MEROPENEM
     Indication: Anti-infective therapy
     Route: 042
  6. CEFOPERAZONE\SULBACTAM [Concomitant]
     Active Substance: CEFOPERAZONE\SULBACTAM
     Indication: Stomatococcal infection
     Route: 065
  7. ATORVASTATIN [Suspect]
     Active Substance: ATORVASTATIN
     Indication: Hyperlipidaemia
     Route: 048

REACTIONS (4)
  - Multiple organ dysfunction syndrome [Fatal]
  - Renal failure [Fatal]
  - Acute left ventricular failure [Fatal]
  - Hepatic failure [Fatal]
